FAERS Safety Report 6831864-X (Version None)
Quarter: 2010Q3

REPORT INFORMATION
  Report Type: 
  Country: None (occurrence: None)
  Receive Date: 20100712
  Receipt Date: 20100701
  Transmission Date: 20110219
  Serious: Yes (Other)
  Sender: FDA-Public Use
  Company Number: JP-PFIZER INC-2010082565

PATIENT

DRUGS (1)
  1. ALDACTONE [Suspect]
     Dosage: UNK
     Route: 048

REACTIONS (1)
  - CHOLESTASIS [None]
